FAERS Safety Report 5780795-5 (Version None)
Quarter: 2008Q2

REPORT INFORMATION
  Report Type: 
  Country: None (occurrence: None)
  Receive Date: 20080620
  Receipt Date: 20080609
  Transmission Date: 20081010
  Serious: Yes (Other)
  Sender: FDA-Public Use
  Company Number: US-PFIZER INC-2004022258

PATIENT
  Age: 37 Year
  Sex: Male

DRUGS (2)
  1. SILDENAFIL CITRATE [Suspect]
     Indication: ERECTILE DYSFUNCTION
     Dosage: DAILY DOSE:50MG-FREQ:FOR THREE MONTHS
     Route: 048
  2. SILDENAFIL CITRATE [Suspect]
     Route: 048

REACTIONS (6)
  - CHORIORETINOPATHY [None]
  - CYANOPSIA [None]
  - DIZZINESS [None]
  - DYSPEPSIA [None]
  - NASAL CONGESTION [None]
  - PHOTOPHOBIA [None]
